FAERS Safety Report 5611485-7 (Version None)
Quarter: 2008Q1

REPORT INFORMATION
  Report Type: 
  Country: None (occurrence: None)
  Receive Date: 20080201
  Receipt Date: 20080123
  Transmission Date: 20080703
  Serious: Yes (Other)
  Sender: FDA-Public Use
  Company Number: AR-PFIZER INC-2008006761

PATIENT
  Sex: Male

DRUGS (3)
  1. CELEBREX [Suspect]
     Route: 048
  2. ARAVA [Concomitant]
     Route: 048
  3. OMEPRAZOLE [Concomitant]
     Route: 048

REACTIONS (2)
  - EOSINOPHILIA [None]
  - LYMPHOCYTE COUNT DECREASED [None]
